FAERS Safety Report 6827372-2 (Version None)
Quarter: 2010Q3

REPORT INFORMATION
  Report Type: 
  Country: None (occurrence: None)
  Receive Date: 20100709
  Receipt Date: 20100706
  Transmission Date: 20110219
  Serious: Yes (Other)
  Sender: FDA-Public Use
  Company Number: A0866474A

PATIENT
  Age: 45 Year
  Sex: Female

DRUGS (1)
  1. ALLI [Suspect]
     Indication: WEIGHT LOSS DIET
     Route: 048
     Dates: start: 20090101

REACTIONS (4)
  - DIARRHOEA [None]
  - HAEMATOCHEZIA [None]
  - RECTAL DISCHARGE [None]
  - TREATMENT NONCOMPLIANCE [None]
